FAERS Safety Report 8612107-3 (Version None)
Quarter: 2012Q3

REPORT INFORMATION
  Report Type: 
  Country: None (occurrence: None)
  Receive Date: 20120822
  Receipt Date: 20120813
  Transmission Date: 20120928
  Serious: No
  Sender: FDA-Public Use
  Company Number: US-ASTRAZENECA-2012SE57363

PATIENT
  Age: 49 Year
  Sex: Male

DRUGS (7)
  1. QUETIAPINE [Suspect]
     Route: 048
  2. VENLAFAXINE [Concomitant]
  3. ZOLOFT [Concomitant]
  4. PAXIL [Concomitant]
  5. WELLBUTRIN [Concomitant]
  6. DULOXETINE HYDROCHLORIDE [Concomitant]
     Indication: MAJOR DEPRESSION
  7. FLUOXETINE HCL [Concomitant]

REACTIONS (1)
  - CONDITION AGGRAVATED [None]
